FAERS Safety Report 22638612 (Version 2)
Quarter: 2024Q2

REPORT INFORMATION
  Report Type: Other
  Country: IT (occurrence: None)
  Receive Date: 20230626
  Receipt Date: 20240425
  Transmission Date: 20240716
  Serious: No
  Sender: FDA-Public Use
  Company Number: IT-ROCHE-2779480

PATIENT
  Age: 38 Year
  Sex: Female
  Weight: 65 kg

DRUGS (18)
  1. OCRELIZUMAB [Suspect]
     Active Substance: OCRELIZUMAB
     Indication: Relapsing-remitting multiple sclerosis
     Dosage: 300 MG/ 250 ML AT DAY 0,14, THEN 600 MG EVERY 6 MONTHS
     Route: 042
     Dates: start: 20190704, end: 20190704
  2. OCRELIZUMAB [Suspect]
     Active Substance: OCRELIZUMAB
     Dosage: 300 MG/ 250 ML
     Route: 042
     Dates: start: 20190718, end: 20190718
  3. OCRELIZUMAB [Suspect]
     Active Substance: OCRELIZUMAB
     Dosage: 600 MG/ 500 ML
     Route: 042
     Dates: start: 20200116, end: 20200116
  4. OCRELIZUMAB [Suspect]
     Active Substance: OCRELIZUMAB
     Dosage: 600 MG/ 500 ML
     Route: 042
     Dates: start: 20200716, end: 20200716
  5. OCRELIZUMAB [Suspect]
     Active Substance: OCRELIZUMAB
     Dosage: 600 MG/ 500 ML
     Route: 042
     Dates: start: 20210520, end: 20210520
  6. OCRELIZUMAB [Suspect]
     Active Substance: OCRELIZUMAB
     Dosage: 600 MG/ 500 ML
     Route: 042
     Dates: start: 20211124, end: 20211124
  7. OCRELIZUMAB [Suspect]
     Active Substance: OCRELIZUMAB
     Dosage: 600 MG/ 500 ML
     Route: 042
     Dates: start: 20220624, end: 20220624
  8. OCRELIZUMAB [Suspect]
     Active Substance: OCRELIZUMAB
     Dosage: 600 MG/ 500 ML
     Route: 042
     Dates: start: 20230615, end: 20230615
  9. OCRELIZUMAB [Suspect]
     Active Substance: OCRELIZUMAB
     Dosage: 600 MG/ 500 ML
     Route: 042
     Dates: start: 20240325, end: 20240325
  10. CIPRALEX [Concomitant]
     Active Substance: ESCITALOPRAM OXALATE
     Route: 048
  11. MEDROL [Concomitant]
     Active Substance: METHYLPREDNISOLONE
     Route: 048
     Dates: start: 20190705, end: 20190710
  12. MEDROL [Concomitant]
     Active Substance: METHYLPREDNISOLONE
     Route: 048
     Dates: start: 20190711, end: 20190713
  13. PANTOPRAZOLE SODIUM [Concomitant]
     Active Substance: PANTOPRAZOLE SODIUM
     Dosage: NEXT DOSE ON 18/JUL/2019, 16/JAN/2020, 20/MAY/2021
     Route: 042
     Dates: start: 20190704, end: 20190704
  14. TRIMETON [Concomitant]
     Active Substance: CHLORPHENIRAMINE MALEATE
     Dosage: NEXT DOSE ON 18/JUL/2019, 16/JAN/2020, 16/JUL/2020, 20/MAY/2021
     Route: 042
     Dates: start: 20190704, end: 20190704
  15. ACETAMINOPHEN [Concomitant]
     Active Substance: ACETAMINOPHEN
     Dosage: NEXT DOSE ON 18/JUL/2019,
     Route: 042
     Dates: start: 20190704, end: 20190704
  16. METHYLPREDNISOLONE [Concomitant]
     Active Substance: METHYLPREDNISOLONE
     Dosage: NEXT DOSE ON 18/JUL/2019, 16/JUL/2020, 20/MAY/2021
     Route: 042
     Dates: start: 20190704, end: 20190704
  17. PERFALGAN [Concomitant]
     Active Substance: ACETAMINOPHEN
     Dosage: NEXT DOSE ON 16/JUL/2020, 20/MAY/2021
     Route: 042
     Dates: start: 20200116, end: 20200116
  18. METHYLPREDNISOLONE [Concomitant]
     Active Substance: METHYLPREDNISOLONE
     Route: 042
     Dates: start: 20200116, end: 20200116

REACTIONS (3)
  - B-lymphocyte count decreased [Recovered/Resolved]
  - B-lymphocyte abnormalities [Recovered/Resolved]
  - COVID-19 [Recovered/Resolved]

NARRATIVE: CASE EVENT DATE: 20210101
